FAERS Safety Report 10067704 (Version 2)
Quarter: 2014Q4

REPORT INFORMATION
  Report Type: Spontaneous
  Country: US (occurrence: US)
  Receive Date: 20140409
  Receipt Date: 20141009
  Transmission Date: 20150528
  Serious: Yes (Other)
  Sender: FDA-Public Use
  Company Number: US-TEVA-474076USA

PATIENT
  Age: 49 Year
  Sex: Female
  Weight: 67.19 kg

DRUGS (1)
  1. PARAGARD T380A [Suspect]
     Active Substance: COPPER
     Indication: CONTRACEPTION
     Route: 015
     Dates: start: 201310, end: 20140331

REACTIONS (4)
  - Device dislocation [Recovered/Resolved]
  - Menorrhagia [Unknown]
  - Dysmenorrhoea [Unknown]
  - Metrorrhagia [Recovered/Resolved]

NARRATIVE: CASE EVENT DATE: 201311
